FAERS Safety Report 8766688 (Version 3)
Quarter: 2012Q4

REPORT INFORMATION
  Report Type: Report from Study
  Country: JP (occurrence: JP)
  Receive Date: 20120904
  Receipt Date: 20121109
  Transmission Date: 20130627
  Serious: No
  Sender: FDA-Public Use
  Company Number: JP-JNJFOC-20120812339

PATIENT
  Age: 52 Year
  Sex: Male

DRUGS (10)
  1. DUROTEP [Suspect]
     Indication: PAIN
     Route: 062
     Dates: start: 20100717, end: 20100809
  2. DUROTEP [Suspect]
     Indication: PAIN
     Route: 062
     Dates: start: 20100810, end: 20100811
  3. DUROTEP [Suspect]
     Indication: PAIN
     Route: 062
     Dates: start: 20100705, end: 20100717
  4. NEUROTROPIN [Concomitant]
     Indication: PAIN
     Route: 048
  5. PRIMPERAN [Concomitant]
     Indication: PROPHYLAXIS
     Route: 048
     Dates: start: 20100705, end: 20100719
  6. PARIET [Concomitant]
     Route: 048
  7. GASMOTIN [Concomitant]
     Route: 048
  8. BERIZYM [Concomitant]
     Route: 048
  9. PURSENNID [Concomitant]
     Route: 048
  10. POSTERISAN [Concomitant]
     Route: 061

REACTIONS (2)
  - Wrong technique in drug usage process [Unknown]
  - Wrong technique in drug usage process [Unknown]
